FAERS Safety Report 4651994-0 (Version None)
Quarter: 2005Q2

REPORT INFORMATION
  Report Type: 
  Country: None (occurrence: None)
  Receive Date: 20050504
  Receipt Date: 20041208
  Transmission Date: 20051028
  Serious: Yes (Death, Life-Threatening, Hospitalization, Other)
  Sender: FDA-Public Use
  Company Number: 200422067GDDC

PATIENT
  Age: 73 Year
  Sex: Male

DRUGS (3)
  1. ARAVA [Suspect]
     Indication: RHEUMATOID ARTHRITIS
     Route: 048
     Dates: start: 20040810, end: 20041027
  2. METHOTREXATE [Suspect]
     Indication: RHEUMATOID ARTHRITIS
     Route: 048
     Dates: start: 20041028, end: 20041110
  3. PREDNISOLONE [Concomitant]
     Dosage: DOSE: UNK

REACTIONS (16)
  - ACUTE RESPIRATORY DISTRESS SYNDROME [None]
  - ANOREXIA [None]
  - BRONCHOPNEUMONIA [None]
  - COLLAPSE OF LUNG [None]
  - DIFFUSE ALVEOLAR DAMAGE [None]
  - DRUG TOXICITY [None]
  - DYSPNOEA [None]
  - FATIGUE [None]
  - INTERSTITIAL LUNG DISEASE [None]
  - LUNG INJURY [None]
  - MULTI-ORGAN FAILURE [None]
  - NAUSEA [None]
  - OROPHARYNGEAL SWELLING [None]
  - PNEUMONITIS [None]
  - RESPIRATORY FAILURE [None]
  - SWELLING FACE [None]
